FAERS Safety Report 10653624 (Version 3)
Quarter: 2017Q1

REPORT INFORMATION
  Report Type: Spontaneous
  Country: MY (occurrence: MY)
  Receive Date: 20141216
  Receipt Date: 20170104
  Transmission Date: 20170428
  Serious: Yes (Life-Threatening, Hospitalization)
  Sender: FDA-Public Use
  Company Number: MY-AMGEN-MYSSP2014097756

PATIENT
  Age: 66 Year
  Sex: Female
  Weight: 51 kg

DRUGS (35)
  1. RITUXIMAB [Suspect]
     Active Substance: RITUXIMAB
     Indication: DIFFUSE LARGE B-CELL LYMPHOMA
     Dosage: 544 MG, 1 IN 21 D
     Route: 042
     Dates: start: 20130430
  2. RITUXIMAB [Suspect]
     Active Substance: RITUXIMAB
     Dosage: 1400 MG, 1 IN 21 D
     Route: 058
     Dates: start: 20130723
  3. FLUCONAZOLE. [Concomitant]
     Active Substance: FLUCONAZOLE
     Dosage: 200 MG, 2 IN 1 D
     Route: 048
     Dates: start: 20130714, end: 20130715
  4. NYSTATIN. [Concomitant]
     Active Substance: NYSTATIN
     Indication: PROPHYLAXIS
     Dosage: 5000000 IU, 4 IN 1 D
     Route: 048
     Dates: start: 20130822, end: 20130826
  5. SLOW-K [Concomitant]
     Active Substance: POTASSIUM CHLORIDE
     Dosage: 1.2 G, 2 IN 1 D
     Route: 048
     Dates: start: 20130903, end: 20130909
  6. CALCIUM CARBONATE. [Concomitant]
     Active Substance: CALCIUM CARBONATE
     Indication: PROPHYLAXIS
     Dosage: 2 TABLETS (3 IN 1 D)
     Route: 048
     Dates: start: 20130926, end: 20131111
  7. CYCLOPHOSPHAMIDE. [Suspect]
     Active Substance: CYCLOPHOSPHAMIDE
     Indication: DIFFUSE LARGE B-CELL LYMPHOMA
     Dosage: 750 MG, 1 IN 3 WK
     Route: 042
     Dates: start: 20130430, end: 20130430
  8. DOXORUBICIN [Suspect]
     Active Substance: DOXORUBICIN
     Indication: DIFFUSE LARGE B-CELL LYMPHOMA
     Dosage: 50 MG, 1 IN 3 WK
     Route: 042
     Dates: start: 20130430, end: 20130430
  9. MAXOLON [Concomitant]
     Active Substance: METOCLOPRAMIDE HYDROCHLORIDE
     Indication: VOMITING
     Dosage: 10 MBQ, 1 IN 8 HR
     Route: 048
     Dates: start: 20130509
  10. SLOW-K [Concomitant]
     Active Substance: POTASSIUM CHLORIDE
     Indication: HYPOKALAEMIA
     Dosage: 12 G, 2 IN 1 D
     Route: 048
     Dates: start: 20130702
  11. SLOW-K [Concomitant]
     Active Substance: POTASSIUM CHLORIDE
     Dosage: 1.2 G, 2 IN 1 D
     Route: 048
     Dates: start: 20130911, end: 20130917
  12. FILGRASTIM [Suspect]
     Active Substance: FILGRASTIM
     Indication: NEUTROPENIA
     Dosage: 300 MG, ONCE
     Route: 058
     Dates: start: 20130714, end: 20130714
  13. VINCRISTINE [Suspect]
     Active Substance: VINCRISTINE
     Indication: DIFFUSE LARGE B-CELL LYMPHOMA
     Dosage: 1.4 MG, 1 IN 3 WK
     Route: 042
     Dates: start: 20130430, end: 20130430
  14. SLOW-K [Concomitant]
     Active Substance: POTASSIUM CHLORIDE
     Dosage: 2.4 G, 2 IN 1 D
     Route: 048
     Dates: start: 20130801, end: 20130805
  15. UNASYN [Concomitant]
     Active Substance: AMPICILLIN SODIUM\SULBACTAM SODIUM
     Indication: NEUTROPENIC SEPSIS
     Dosage: 750 MG, 1 IN 12 HR
     Route: 048
     Dates: start: 20130513, end: 20130514
  16. AUGMENTINE [Concomitant]
     Active Substance: AMOXICILLIN\CLAVULANATE POTASSIUM
     Indication: UPPER RESPIRATORY TRACT INFECTION
     Dosage: 625 MG, 2 IN 1 D
     Route: 048
     Dates: start: 20130716, end: 20130720
  17. FILGRASTIM [Suspect]
     Active Substance: FILGRASTIM
     Dosage: 300 MG, ONCE
     Route: 058
     Dates: start: 20130801, end: 20130805
  18. FILGRASTIM [Suspect]
     Active Substance: FILGRASTIM
     Dosage: 300 MG, ONCE
     Route: 058
     Dates: start: 20130911, end: 20130913
  19. FILGRASTIM [Suspect]
     Active Substance: FILGRASTIM
     Dosage: 300 MG, ONCE
     Route: 058
     Dates: start: 20130909, end: 20130909
  20. NYSTATIN. [Concomitant]
     Active Substance: NYSTATIN
     Dosage: 500000 IU, Q12H
     Route: 048
     Dates: start: 20130513, end: 20130513
  21. FILGRASTIM [Suspect]
     Active Substance: FILGRASTIM
     Dosage: 300 MG, ONCE
     Route: 058
     Dates: start: 20130820, end: 20130826
  22. FILGRASTIM [Suspect]
     Active Substance: FILGRASTIM
     Dosage: 300 MG, EVERY DAY
     Route: 058
     Dates: start: 20131010, end: 20131011
  23. PHENERGAN [Concomitant]
     Active Substance: PROMETHAZINE HYDROCHLORIDE
     Dosage: 15 MG, ONCE
     Route: 048
     Dates: start: 20130430
  24. KYTRIL [Concomitant]
     Active Substance: GRANISETRON HYDROCHLORIDE
     Indication: PROPHYLAXIS
     Dosage: 3 MG, ONCE
     Route: 042
     Dates: start: 20130430
  25. ALLOPURINOL. [Concomitant]
     Active Substance: ALLOPURINOL
     Indication: PROPHYLAXIS
     Dosage: 300 MG, EVERY 24 HOURS
     Route: 048
     Dates: start: 20130430
  26. PARACETAMOL [Concomitant]
     Active Substance: ACETAMINOPHEN
     Indication: PROPHYLAXIS
     Dosage: 1 G, ONCE
     Route: 048
     Dates: start: 20130430
  27. BROMHEXIN [Concomitant]
     Active Substance: BROMHEXINE
     Indication: UPPER RESPIRATORY TRACT INFECTION
     Dosage: 8 MG, 3 IN 1 D
     Route: 048
     Dates: start: 20130716, end: 20130720
  28. FILGRASTIM [Suspect]
     Active Substance: FILGRASTIM
     Dosage: 300 MG ,1 IN 1 D
     Route: 058
     Dates: start: 20130507, end: 20130509
  29. RITUXIMAB [Suspect]
     Active Substance: RITUXIMAB
     Dosage: 544 MG, 1 IN 21 D
     Route: 042
     Dates: start: 20130521
  30. NYSTATIN. [Concomitant]
     Active Substance: NYSTATIN
     Indication: ORAL CANDIDIASIS
     Dosage: 5000000 IU, 4 IN 1 D
     Route: 048
     Dates: start: 20130714, end: 20140715
  31. FOLIC ACID. [Concomitant]
     Active Substance: FOLIC ACID
     Indication: PROPHYLAXIS
     Dosage: 5 MG, 1 IN 1 D
     Route: 048
     Dates: start: 20130926, end: 20140414
  32. FILGRASTIM [Suspect]
     Active Substance: FILGRASTIM
     Dosage: 300 MG, ONCE
     Route: 058
     Dates: start: 20130924, end: 20130927
  33. PREDNISOLONE. [Suspect]
     Active Substance: PREDNISOLONE
     Indication: DIFFUSE LARGE B-CELL LYMPHOMA
     Dosage: 50 MG, 1 IN 24 HR
     Route: 048
     Dates: start: 20130430, end: 20130504
  34. FLUCONAZOLE. [Concomitant]
     Active Substance: FLUCONAZOLE
     Indication: ORAL CANDIDIASIS
     Dosage: 0.2 G, 1 IN 24 HR
     Route: 048
     Dates: start: 20130411, end: 20130413
  35. SLOW-K [Concomitant]
     Active Substance: POTASSIUM CHLORIDE
     Dosage: 2 TABLETS 2 IN 1 D
     Route: 048
     Dates: start: 20130715, end: 20130719

REACTIONS (2)
  - Neutropenic sepsis [Recovered/Resolved]
  - Neutropenia [Recovered/Resolved]

NARRATIVE: CASE EVENT DATE: 20130507
